FAERS Safety Report 9983963 (Version 2)
Quarter: 2014Q1

REPORT INFORMATION
  Report Type: Report from Study
  Country: US (occurrence: US)
  Receive Date: 20140307
  Receipt Date: 20140307
  Transmission Date: 20141002
  Serious: No
  Sender: FDA-Public Use
  Company Number: US-ABBVIE-13P-163-1170682-00

PATIENT
  Age: 47 Year
  Sex: Male

DRUGS (7)
  1. HUMIRA [Suspect]
     Indication: CROHN^S DISEASE
     Dates: start: 20131101, end: 20131101
  2. HUMIRA [Suspect]
     Dates: start: 20131115, end: 20131115
  3. HUMIRA [Suspect]
  4. METHOTREXATE [Concomitant]
     Indication: CROHN^S DISEASE
  5. NORTRIPTYLINE [Concomitant]
     Indication: CROHN^S DISEASE
  6. PREDNISONE [Concomitant]
     Indication: CROHN^S DISEASE
  7. PREDNISONE [Concomitant]

REACTIONS (3)
  - Device issue [Unknown]
  - Injection site reaction [Recovered/Resolved]
  - Injection site haemorrhage [Recovered/Resolved]
